FAERS Safety Report 23767943 (Version 1)
Quarter: 2024Q2

REPORT INFORMATION
  Report Type: Spontaneous
  Country: US (occurrence: None)
  Receive Date: 20240419
  Receipt Date: 20240419
  Transmission Date: 20240715
  Serious: Yes (Other)
  Sender: FDA-Public Use
  Company Number: None

PATIENT
  Age: 25 Year
  Sex: Female
  Weight: 67.5 kg

DRUGS (3)
  1. CAPLYTA [Suspect]
     Active Substance: LUMATEPERONE
     Indication: Bipolar disorder
     Dosage: 10.5 MG DAILY ORAL
     Route: 048
     Dates: start: 20240227, end: 20240308
  2. VIVITROL [Concomitant]
     Active Substance: NALTREXONE
     Dates: start: 20240229
  3. PRAZOSIN [Concomitant]
     Active Substance: PRAZOSIN

REACTIONS (5)
  - Syncope [None]
  - Orthostatic hypotension [None]
  - Bradycardia [None]
  - Adrenal insufficiency [None]
  - Adverse drug reaction [None]

NARRATIVE: CASE EVENT DATE: 20240313
